FAERS Safety Report 11022148 (Version 3)
Quarter: 2015Q2

REPORT INFORMATION
  Report Type: Spontaneous
  Country: JP (occurrence: JP)
  Receive Date: 20150413
  Receipt Date: 20150428
  Transmission Date: 20150821
  Serious: Yes (Other)
  Sender: FDA-Public Use
  Company Number: JP-GLAXOSMITHKLINE-JP2015JPN047723

PATIENT
  Age: 73 Year
  Sex: Female

DRUGS (4)
  1. URSO [Concomitant]
     Active Substance: URSODIOL
     Dosage: 200 MG, TID
  2. CIMETIDINE [Concomitant]
     Active Substance: CIMETIDINE
     Dosage: 200 MG, BID
  3. FLUTICASONE FUROATE + VILANTEROL TRIFENATATE [Suspect]
     Active Substance: FLUTICASONE FUROATE\VILANTEROL TRIFENATATE
     Indication: ASTHMA
     Dosage: 100 ?G, QD
     Route: 055
     Dates: start: 20150116, end: 20150409
  4. THYRADIN S [Concomitant]
     Active Substance: LEVOTHYROXINE SODIUM
     Dosage: 50 ?G, QD

REACTIONS (5)
  - Oropharyngeal discomfort [Recovered/Resolved]
  - Pharyngeal haemorrhage [Recovered/Resolved]
  - Oral mucosal erythema [Unknown]
  - Pharyngeal erythema [Unknown]
  - Pharyngitis [Unknown]

NARRATIVE: CASE EVENT DATE: 20150331
